FAERS Safety Report 4439545-7 (Version None)
Quarter: 2004Q3

REPORT INFORMATION
  Report Type: 
  Country: None (occurrence: None)
  Receive Date: 20040901
  Receipt Date: 20040901
  Transmission Date: 20050211
  Serious: Yes (Hospitalization)
  Sender: FDA-Public Use
  Company Number: None

PATIENT
  Sex: Female
  Weight: 81.4207 kg

DRUGS (7)
  1. COUMADIN [Suspect]
     Indication: ANTICOAGULANT THERAPY
     Dosage: 2.5 MG ALTERNATING WITH 5 MG PO [PRIOR TO ADMISSION]
     Route: 048
  2. LASIX [Concomitant]
  3. POTASSIUM [Concomitant]
  4. COLACE [Concomitant]
  5. ALTACE [Concomitant]
  6. CORDARONE [Concomitant]
  7. ASPIRIN [Concomitant]

REACTIONS (3)
  - INTERNATIONAL NORMALISED RATIO INCREASED [None]
  - PROTHROMBIN TIME PROLONGED [None]
  - SYNCOPE [None]
